FAERS Safety Report 10098127 (Version 2)
Quarter: 2014Q3

REPORT INFORMATION
  Report Type: Spontaneous
  Country: GB (occurrence: None)
  Receive Date: 20140421
  Receipt Date: 20140725
  Transmission Date: 20150326
  Serious: Yes (Death)
  Sender: FDA-Public Use
  Company Number: AUR-APL-2014-04441

PATIENT
  Age: 3 Decade
  Sex: Female

DRUGS (2)
  1. GABAPENTIN. [Suspect]
     Active Substance: GABAPENTIN
     Indication: PRODUCT USED FOR UNKNOWN INDICATION
  2. ATROPINE SULFATE. [Concomitant]
     Active Substance: ATROPINE SULFATE

REACTIONS (2)
  - Drug abuse [None]
  - Overdose [None]
